FAERS Safety Report 15774822 (Version 1)
Quarter: 2018Q4

REPORT INFORMATION
  Report Type: Spontaneous
  Country: CH (occurrence: CH)
  Receive Date: 20181230
  Receipt Date: 20181230
  Transmission Date: 20190205
  Serious: Yes (Other)
  Sender: FDA-Public Use
  Company Number: CH-BAXTER-2018BAX031182

PATIENT
  Sex: Female

DRUGS (2)
  1. PREDNISONE. [Suspect]
     Active Substance: PREDNISONE
     Indication: HAEMOLYSIS
     Dosage: HIGHLY CONCENTRATED
     Route: 065
  2. ENDOXAN, DRAG?E [Suspect]
     Active Substance: CYCLOPHOSPHAMIDE
     Indication: HAEMOLYSIS
     Route: 048

REACTIONS (4)
  - Drug ineffective [Unknown]
  - Autoimmune haemolytic anaemia [Unknown]
  - Pruritus [Unknown]
  - Dry skin [Unknown]
